FAERS Safety Report 18356408 (Version 2)
Quarter: 2020Q4

REPORT INFORMATION
  Report Type: Spontaneous
  Country: US (occurrence: US)
  Receive Date: 20201007
  Receipt Date: 20201104
  Transmission Date: 20210114
  Serious: No
  Sender: FDA-Public Use
  Company Number: US-BAUSCH-BL-2020-027064

PATIENT
  Age: 69 Year
  Sex: Female

DRUGS (4)
  1. GENTEAL MILD [Concomitant]
     Active Substance: HYPROMELLOSE 2910 (4000 MPA.S)
     Indication: PRODUCT USED FOR UNKNOWN INDICATION
  2. LACRISERT [Suspect]
     Active Substance: HYDROXYPROPYL CELLULOSE
     Indication: SJOGREN^S SYNDROME
     Dosage: STARTED 30 YEAR AGO, DOES NOT REMEMBER EXACT DATE
     Route: 047
  3. LACRISERT [Suspect]
     Active Substance: HYDROXYPROPYL CELLULOSE
     Route: 047
     Dates: end: 202006
  4. SYSTANE (HYPROMELLOSE 2910 (4000 MPA.S)) [Concomitant]
     Active Substance: HYPROMELLOSE 2910 (4000 MPA.S)
     Indication: PRODUCT USED FOR UNKNOWN INDICATION

REACTIONS (5)
  - Dry eye [Not Recovered/Not Resolved]
  - Therapy interrupted [Unknown]
  - Feeling abnormal [Not Recovered/Not Resolved]
  - Intentional product use issue [Unknown]
  - Product availability issue [Unknown]

NARRATIVE: CASE EVENT DATE: 2020
